FAERS Safety Report 5149882-9 (Version None)
Quarter: 2006Q4

REPORT INFORMATION
  Report Type: 
  Country: None (occurrence: None)
  Receive Date: 20061108
  Receipt Date: 20061026
  Transmission Date: 20070319
  Serious: Yes (Other)
  Sender: FDA-Public Use
  Company Number: 2006134329

PATIENT
  Sex: Male

DRUGS (2)
  1. VIOXX [Suspect]
     Dates: start: 20040707, end: 20040930
  2. BEXTRA [Suspect]

REACTIONS (2)
  - ISCHAEMIC STROKE [None]
  - MYOCARDIAL INFARCTION [None]
